FAERS Safety Report 5098193-9 (Version None)
Quarter: 2006Q3

REPORT INFORMATION
  Report Type: 
  Country: None (occurrence: None)
  Receive Date: 20060906
  Receipt Date: 20060525
  Transmission Date: 20061208
  Serious: No
  Sender: FDA-Public Use
  Company Number: US-GLAXOSMITHKLINE-A0606957A

PATIENT
  Age: 73 Year
  Sex: Male

DRUGS (5)
  1. REQUIP [Suspect]
     Indication: RESTLESS LEGS SYNDROME
     Dosage: 2MG FIVE TIMES PER DAY
     Route: 048
     Dates: start: 20020101
  2. GLYBURIDE [Concomitant]
  3. METFORMIN HCL [Concomitant]
  4. CENTRUM [Concomitant]
  5. ASPIRIN [Concomitant]

REACTIONS (1)
  - THERAPEUTIC RESPONSE DECREASED [None]
